FAERS Safety Report 25990338 (Version 2)
Quarter: 2025Q4

REPORT INFORMATION
  Report Type: Spontaneous
  Country: CA (occurrence: CA)
  Receive Date: 20251103
  Receipt Date: 20251231
  Transmission Date: 20260117
  Serious: Yes (Other)
  Sender: PFIZER
  Company Number: CA-PFIZER INC-202500215319

PATIENT
  Age: 50 Year
  Sex: Female

DRUGS (2)
  1. ABRILADA [Suspect]
     Active Substance: ADALIMUMAB-AFZB
     Indication: Ankylosing spondylitis
     Dosage: 1 DF (80MG X1, THEN 40MG X1 ONE WEEK LATER, THEN 40MG Q2WEEKS)
     Route: 058
     Dates: start: 20251013
  2. DUREZOL [Concomitant]
     Active Substance: DIFLUPREDNATE
     Dosage: UNK

REACTIONS (1)
  - Uveitis [Unknown]
